FAERS Safety Report 15109129 (Version 2)
Quarter: 2019Q1

REPORT INFORMATION
  Report Type: Spontaneous
  Country: US (occurrence: US)
  Receive Date: 20180705
  Receipt Date: 20190121
  Transmission Date: 20190417
  Serious: No
  Sender: FDA-Public Use
  Company Number: US-BIOGEN-2018BI00600423

PATIENT
  Age: 78 Year
  Sex: Male

DRUGS (1)
  1. PLEGRIDY [Suspect]
     Active Substance: PEGINTERFERON BETA-1A
     Indication: MULTIPLE SCLEROSIS
     Route: 065
     Dates: start: 20170705

REACTIONS (8)
  - Injection site erythema [Unknown]
  - Injection site pain [Unknown]
  - Hypoacusis [Unknown]
  - Product dose omission [Not Recovered/Not Resolved]
  - Erythema [Unknown]
  - Pain [Unknown]
  - Injection site reaction [Unknown]
  - Peripheral swelling [Unknown]

NARRATIVE: CASE EVENT DATE: 201901
